FAERS Safety Report 6687013-4 (Version None)
Quarter: 2010Q2

REPORT INFORMATION
  Report Type: 
  Country: None (occurrence: None)
  Receive Date: 20100419
  Receipt Date: 20100415
  Transmission Date: 20101027
  Serious: Yes (Death, Hospitalization)
  Sender: FDA-Public Use
  Company Number: AU-B.I. PHARMACEUTICALS,INC./RIDGEFIELD-2010-AU-00303AU

PATIENT
  Sex: Male

DRUGS (1)
  1. ASASANTIN SR [Suspect]
     Indication: TRANSIENT ISCHAEMIC ATTACK
     Dates: start: 20100409

REACTIONS (2)
  - ANEURYSM [None]
  - DEATH [None]
